FAERS Safety Report 14770430 (Version 1)
Quarter: 2018Q2

REPORT INFORMATION
  Report Type: Spontaneous
  Country: US (occurrence: US)
  Receive Date: 20180417
  Receipt Date: 20180417
  Transmission Date: 20180711
  Serious: No
  Sender: FDA-Public Use
  Company Number: US-MYLANLABS-2018M1021923

PATIENT
  Sex: Female

DRUGS (1)
  1. LIDOCAINE MYLAN [Suspect]
     Active Substance: LIDOCAINE
     Indication: PRODUCT USED FOR UNKNOWN INDICATION
     Dosage: UNK
     Route: 065

REACTIONS (4)
  - Product quality issue [Unknown]
  - No adverse event [Unknown]
  - Wrong patient received medication [Unknown]
  - Product adhesion issue [Unknown]
